FAERS Safety Report 13403288 (Version 1)
Quarter: 2017Q2

REPORT INFORMATION
  Report Type: Spontaneous
  Country: US (occurrence: US)
  Receive Date: 20170404
  Receipt Date: 20170404
  Transmission Date: 20170830
  Serious: No
  Sender: FDA-Public Use
  Company Number: US-ROCHE-1881486

PATIENT
  Sex: Female
  Weight: 69.46 kg

DRUGS (2)
  1. AVASTIN [Suspect]
     Active Substance: BEVACIZUMAB
     Indication: DIABETIC RETINOPATHY
     Dosage: ALTERNATING EYES EVERY 2 WKS
     Route: 065
     Dates: start: 2016, end: 20161115
  2. EYLEA [Concomitant]
     Active Substance: AFLIBERCEPT
     Indication: DIABETIC RETINOPATHY
     Dosage: ALTERNATING EYES EVERY 2 WKS
     Route: 031
     Dates: start: 20161117

REACTIONS (2)
  - Drug ineffective [Unknown]
  - No adverse event [Unknown]
